FAERS Safety Report 16966723 (Version 1)
Quarter: 2019Q4

REPORT INFORMATION
  Report Type: Spontaneous
  Country: US (occurrence: US)
  Receive Date: 20191028
  Receipt Date: 20191028
  Transmission Date: 20200122
  Serious: No
  Sender: FDA-Public Use
  Company Number: US-SA-2019SA290996

PATIENT
  Age: 61 Year
  Sex: Male

DRUGS (8)
  1. CYCLOBENZAPRINE. [Concomitant]
     Active Substance: CYCLOBENZAPRINE
  2. ALPRAZOLAM. [Concomitant]
     Active Substance: ALPRAZOLAM
  3. DUPIXENT [Suspect]
     Active Substance: DUPILUMAB
     Indication: DERMATITIS ATOPIC
     Dosage: 300 MG, QOW
     Route: 058
     Dates: start: 20190326
  4. CONTOUR [ESOMEPRAZOLE MAGNESIUM] [Concomitant]
  5. ROSUVASTATIN. [Concomitant]
     Active Substance: ROSUVASTATIN
  6. HCTZ [Concomitant]
     Active Substance: HYDROCHLOROTHIAZIDE
  7. BUPROPION. [Concomitant]
     Active Substance: BUPROPION
  8. AMLODIPINE [Concomitant]
     Active Substance: AMLODIPINE BESYLATE

REACTIONS (3)
  - Rash [Recovering/Resolving]
  - Vision blurred [Not Recovered/Not Resolved]
  - Conjunctivitis [Not Recovered/Not Resolved]
